FAERS Safety Report 9862582 (Version 1)
Quarter: 2014Q1

REPORT INFORMATION
  Report Type: Spontaneous
  Country: US (occurrence: US)
  Receive Date: 20140203
  Receipt Date: 20140203
  Transmission Date: 20141002
  Serious: Yes (Death)
  Sender: FDA-Public Use
  Company Number: CHPA2014US001777

PATIENT
  Age: 55 Year
  Sex: Male

DRUGS (6)
  1. ACETAMINOPHEN (PARACETAMOL) [Suspect]
     Dosage: UNK
     Route: 048
  2. DOXYLAMINE [Suspect]
     Dosage: UNK
     Route: 048
  3. LAMOTRIGINE [Suspect]
     Dosage: UNK
     Route: 048
  4. ZOLPIDEM [Suspect]
     Dosage: UNK
     Route: 048
  5. TRAMADOL [Suspect]
     Dosage: UNK
     Route: 048
  6. SALICYLATES [Suspect]
     Dosage: UNK
     Route: 048

REACTIONS (1)
  - Completed suicide [Fatal]
